FAERS Safety Report 23683415 (Version 1)
Quarter: 2024Q1

REPORT INFORMATION
  Report Type: Report from Study
  Country: US (occurrence: US)
  Receive Date: 20240328
  Receipt Date: 20240328
  Transmission Date: 20240410
  Serious: Yes (Hospitalization, Other)
  Sender: FDA-Public Use
  Company Number: US-TAKEDA-2023TUS078932

PATIENT
  Sex: Male

DRUGS (24)
  1. MARIBAVIR [Suspect]
     Active Substance: MARIBAVIR
     Indication: Cytomegalovirus infection
     Dosage: 2 DOSAGE FORM, BID
     Route: 048
     Dates: start: 20230713
  2. MARIBAVIR [Suspect]
     Active Substance: MARIBAVIR
     Dosage: 400 MILLIGRAM, BID
     Route: 048
  3. MARIBAVIR [Suspect]
     Active Substance: MARIBAVIR
     Dosage: 2 DOSAGE FORM, BID
     Route: 048
     Dates: start: 20230810, end: 20231008
  4. PREDNISONE [Concomitant]
     Active Substance: PREDNISONE
     Dosage: UNK UNK, QD
     Route: 048
     Dates: start: 20220703
  5. PREDNISONE [Concomitant]
     Active Substance: PREDNISONE
     Dosage: UNK
     Route: 048
     Dates: start: 20231010, end: 20231216
  6. MYCOPHENOLIC ACID [Concomitant]
     Active Substance: MYCOPHENOLIC ACID
     Dosage: UNK
     Route: 065
     Dates: start: 20220703
  7. TACROLIMUS [Concomitant]
     Active Substance: TACROLIMUS
     Dosage: 1682023 UNK
     Route: 048
     Dates: start: 20220703
  8. TACROLIMUS [Concomitant]
     Active Substance: TACROLIMUS
     Dosage: UNK
     Route: 048
     Dates: start: 20230816, end: 20240103
  9. ATOVAQUONE [Concomitant]
     Active Substance: ATOVAQUONE
     Dosage: UNK UNK, QD
     Route: 048
     Dates: start: 20230627, end: 20240205
  10. AZITHROMYCIN [Concomitant]
     Active Substance: AZITHROMYCIN
     Dosage: UNK
     Route: 048
     Dates: start: 20221214, end: 20240103
  11. CHOLECALCIFEROL [Concomitant]
     Active Substance: CHOLECALCIFEROL
     Dosage: UNK
     Route: 048
     Dates: start: 20230921, end: 20231208
  12. EZETIMIBE [Concomitant]
     Active Substance: EZETIMIBE
     Dosage: UNK UNK, QD
     Route: 048
     Dates: start: 20230524, end: 20240118
  13. FAMOTIDINE [Concomitant]
     Active Substance: FAMOTIDINE
     Dosage: UNK UNK, BID
     Route: 048
     Dates: start: 20230627, end: 20240110
  14. ROSUVASTATIN [Concomitant]
     Active Substance: ROSUVASTATIN
     Dosage: UNK UNK, QD
     Route: 048
     Dates: start: 20230828
  15. GANCICLOVIR [Concomitant]
     Active Substance: GANCICLOVIR
     Dosage: UNK
     Route: 065
     Dates: start: 20230812, end: 20231008
  16. LINACLOTIDE [Concomitant]
     Active Substance: LINACLOTIDE
     Dosage: UNK UNK, QD
     Route: 048
     Dates: start: 20230524
  17. MAGNESIUM HYDROXIDE [Concomitant]
     Active Substance: MAGNESIUM HYDROXIDE
     Indication: Constipation
     Dosage: UNK UNK, QD
     Route: 048
     Dates: start: 20230103
  18. MAGNESIUM OXIDE [Concomitant]
     Active Substance: MAGNESIUM OXIDE
     Dosage: UNK UNK, BID
     Route: 048
     Dates: start: 20221129
  19. METOCLOPRAMIDE HYDROCHLORIDE [Concomitant]
     Active Substance: METOCLOPRAMIDE HYDROCHLORIDE
     Dosage: UNK UNK, QID
     Route: 048
     Dates: start: 20221115, end: 20240205
  20. ONDANSETRON [Concomitant]
     Active Substance: ONDANSETRON
     Dosage: UNK UNK, BID
     Route: 048
     Dates: start: 20230510, end: 20240205
  21. WARFARIN [Concomitant]
     Active Substance: WARFARIN
     Dosage: UNK
     Route: 048
     Dates: start: 20230912, end: 20230927
  22. MYCOPHENOLATE MOFETIL [Concomitant]
     Active Substance: MYCOPHENOLATE MOFETIL
     Dosage: UNK
     Route: 048
     Dates: start: 20230810, end: 20231127
  23. VALGANCICLOVIR [Concomitant]
     Active Substance: VALGANCICLOVIR
     Dosage: UNK
     Route: 048
     Dates: start: 20230810, end: 20231008
  24. SULFUR HEXAFLUORIDE [Concomitant]
     Active Substance: SULFUR HEXAFLUORIDE
     Dosage: 10 MILLIGRAM
     Route: 042

REACTIONS (7)
  - Deep vein thrombosis [Unknown]
  - Vomiting [Unknown]
  - Nausea [Unknown]
  - Blood test abnormal [Unknown]
  - Osteopenia [Unknown]
  - Vitamin D deficiency [Unknown]
  - Product use issue [Unknown]
